FAERS Safety Report 25969149 (Version 1)
Quarter: 2025Q4

REPORT INFORMATION
  Report Type: Spontaneous
  Country: US (occurrence: None)
  Receive Date: 20251028
  Receipt Date: 20251028
  Transmission Date: 20260117
  Serious: No
  Sender: UCB
  Company Number: US-UCBSA-2025067575

PATIENT

DRUGS (2)
  1. NEUPRO [Suspect]
     Active Substance: ROTIGOTINE
     Indication: Restless legs syndrome
     Dosage: 3 MILLIGRAM
  2. NEUPRO [Suspect]
     Active Substance: ROTIGOTINE
     Dosage: 4 MILLIGRAM, ONCE DAILY (QD)

REACTIONS (4)
  - Overdose [Unknown]
  - Product adhesion issue [Unknown]
  - Product dose omission issue [Unknown]
  - Product use issue [Unknown]
